FAERS Safety Report 19509934 (Version 1)
Quarter: 2021Q3

REPORT INFORMATION
  Report Type: Spontaneous
  Country: CN (occurrence: CN)
  Receive Date: 20210708
  Receipt Date: 20210708
  Transmission Date: 20211014
  Serious: Yes (Other)
  Sender: FDA-Public Use
  Company Number: CN-GE HEALTHCARE LIFE SCIENCES-2021CSU003328

PATIENT

DRUGS (2)
  1. OMNIPAQUE [Suspect]
     Active Substance: IOHEXOL
     Indication: CEREBRAL HAEMORRHAGE
  2. OMNIPAQUE [Suspect]
     Active Substance: IOHEXOL
     Indication: ANGIOGRAM CEREBRAL
     Dosage: UNK, SINGLE
     Route: 013
     Dates: start: 20051221, end: 20051221

REACTIONS (6)
  - Mental disorder [Recovered/Resolved]
  - Halo vision [Recovered/Resolved]
  - Disorganised speech [Recovered/Resolved]
  - Delirium [Recovered/Resolved]
  - Dysphoria [Recovered/Resolved]
  - Disorientation [Recovered/Resolved]

NARRATIVE: CASE EVENT DATE: 200512
